FAERS Safety Report 4474173-9 (Version None)
Quarter: 2004Q4

REPORT INFORMATION
  Report Type: 
  Country: None (occurrence: None)
  Receive Date: 20041008
  Receipt Date: 20040922
  Transmission Date: 20050328
  Serious: Yes (Hospitalization)
  Sender: FDA-Public Use
  Company Number: 2004-BP-07422AU

PATIENT
  Age: 72 Year
  Sex: Male

DRUGS (5)
  1. MICARDIS HCT [Suspect]
     Indication: HYPERTENSION
     Dosage: 80/12.5 (SEE TEXT, 1 DAILY (STRENGTH: 80/12.5 MG) )
     Route: 048
     Dates: start: 20040531, end: 20040819
  2. ATORVASTATIN (ATORVASTATIN) [Concomitant]
  3. MIXTARD 30/70 (INSULIN) [Concomitant]
  4. POLYTEARS EYE DROPS (TRA) [Concomitant]
  5. ELOCON CREAM (MOMETASONE) [Concomitant]

REACTIONS (5)
  - CHILLS [None]
  - CIRCULATORY COLLAPSE [None]
  - COUGH [None]
  - HYPOTENSION [None]
  - PYREXIA [None]
